FAERS Safety Report 4827385-6 (Version None)
Quarter: 2005Q4

REPORT INFORMATION
  Report Type: 
  Country: None (occurrence: None)
  Receive Date: 20051114
  Receipt Date: 20050930
  Transmission Date: 20060501
  Serious: Yes (Hospitalization)
  Sender: FDA-Public Use
  Company Number: US-MERCK-0510USA01917

PATIENT
  Age: 74 Year
  Sex: Female
  Weight: 112 kg

DRUGS (3)
  1. VIOXX [Suspect]
     Indication: ARTHRITIS
     Route: 048
     Dates: start: 19990101, end: 20000101
  2. MOTRIN [Concomitant]
     Route: 065
  3. CELEBREX [Suspect]
     Route: 065

REACTIONS (1)
  - MYOCARDIAL INFARCTION [None]
